FAERS Safety Report 15675172 (Version 2)
Quarter: 2019Q1

REPORT INFORMATION
  Report Type: Report from Study
  Country: CA (occurrence: CA)
  Receive Date: 20181130
  Receipt Date: 20190109
  Transmission Date: 20190417
  Serious: Yes (Other)
  Sender: FDA-Public Use
  Company Number: CA-ROCHE-2223569

PATIENT
  Age: 83 Year
  Sex: Male

DRUGS (14)
  1. PREDNISONE. [Concomitant]
     Active Substance: PREDNISONE
  2. METHOTREXATE. [Concomitant]
     Active Substance: METHOTREXATE
  3. PLAQUENIL [Concomitant]
     Active Substance: HYDROXYCHLOROQUINE SULFATE
  4. AMLODIPINE [Concomitant]
     Active Substance: AMLODIPINE BESYLATE
  5. ACTEMRA [Suspect]
     Active Substance: TOCILIZUMAB
     Indication: RHEUMATOID ARTHRITIS
     Route: 058
     Dates: start: 20180717
  6. RAMIPRIL. [Concomitant]
     Active Substance: RAMIPRIL
  7. WARFARIN [Concomitant]
     Active Substance: WARFARIN
  8. LIPITOR [Concomitant]
     Active Substance: ATORVASTATIN CALCIUM
  9. ARAVA [Concomitant]
     Active Substance: LEFLUNOMIDE
  10. SPIRONOLACTONE. [Concomitant]
     Active Substance: SPIRONOLACTONE
  11. ACTEMRA [Suspect]
     Active Substance: TOCILIZUMAB
     Route: 058
     Dates: start: 20180530
  12. SSZ [Concomitant]
     Active Substance: SULFASALAZINE
  13. METOPROLOL. [Concomitant]
     Active Substance: METOPROLOL
  14. PANTOLOC [Concomitant]
     Active Substance: PANTOPRAZOLE SODIUM

REACTIONS (4)
  - Facial pain [Unknown]
  - Bladder disorder [Unknown]
  - Hydrocephalus [Unknown]
  - Tooth infection [Unknown]

NARRATIVE: CASE EVENT DATE: 201809
